FAERS Safety Report 7980586-0 (Version None)
Quarter: 2011Q4

REPORT INFORMATION
  Report Type: 
  Country: None (occurrence: None)
  Receive Date: 20111214
  Receipt Date: 20111212
  Transmission Date: 20120403
  Serious: Yes (Hospitalization)
  Sender: FDA-Public Use
  Company Number: US-TEVA-313308USA

PATIENT
  Sex: Male

DRUGS (2)
  1. VERAPAMIL [Suspect]
     Route: 042
  2. VERAPAMIL [Suspect]
     Route: 048

REACTIONS (1)
  - TORSADE DE POINTES [None]
